FAERS Safety Report 4407184-X (Version None)
Quarter: 2004Q3

REPORT INFORMATION
  Report Type: 
  Country: None (occurrence: None)
  Receive Date: 20040723
  Receipt Date: 20040723
  Transmission Date: 20050211
  Serious: Yes (Other)
  Sender: FDA-Public Use
  Company Number: None

PATIENT
  Age: 77 Year
  Sex: Male
  Weight: 78.5 kg

DRUGS (3)
  1. TERAZOSIN HCL [Suspect]
  2. CYANOCOBALAMIN [Concomitant]
  3. FINASTERIDE [Concomitant]

REACTIONS (1)
  - NAUSEA [None]
